FAERS Safety Report 7651790-6 (Version None)
Quarter: 2011Q3

REPORT INFORMATION
  Report Type: 
  Country: None (occurrence: None)
  Receive Date: 20110802
  Receipt Date: 20110718
  Transmission Date: 20111222
  Serious: Yes (Hospitalization)
  Sender: FDA-Public Use
  Company Number: US-ARROW GEN-2011-11883

PATIENT
  Age: 48 Year
  Sex: Female

DRUGS (2)
  1. CITALOPRAM HYDROBROMIDE [Suspect]
     Indication: MAJOR DEPRESSION
     Dosage: 20 T- 60 MG DAILY
     Route: 048
  2. PAROXETINE HYDROCHLORIDE [Suspect]
     Indication: MAJOR DEPRESSION
     Dosage: 20 MG DAILY

REACTIONS (1)
  - RESTLESS LEGS SYNDROME [None]
